FAERS Safety Report 15852126 (Version 2)
Quarter: 2019Q1

REPORT INFORMATION
  Report Type: Report from Study
  Country: US (occurrence: US)
  Receive Date: 20190122
  Receipt Date: 20190205
  Transmission Date: 20190417
  Serious: Yes (Hospitalization, Other)
  Sender: FDA-Public Use
  Company Number: US-SAKK-2019SA012695AA

PATIENT
  Age: 62 Year
  Sex: Female

DRUGS (2)
  1. INSULIN GLARGINE [Suspect]
     Active Substance: INSULIN GLARGINE
     Indication: DIABETES MELLITUS
     Dosage: UNK, QD
  2. APIDRA [Concomitant]
     Active Substance: INSULIN GLULISINE
     Indication: TYPE 2 DIABETES MELLITUS

REACTIONS (7)
  - Pruritus [Recovering/Resolving]
  - Urinary tract infection [Not Recovered/Not Resolved]
  - Sepsis [Recovered/Resolved]
  - Nephrolithiasis [Not Recovered/Not Resolved]
  - Escherichia infection [Not Recovered/Not Resolved]
  - Urinary incontinence [Not Recovered/Not Resolved]
  - Vulval cancer [Unknown]

NARRATIVE: CASE EVENT DATE: 2007
